FAERS Safety Report 8784966 (Version 1)
Quarter: 2012Q4

REPORT INFORMATION
  Report Type: Report from Study
  Country: CA (occurrence: CA)
  Receive Date: 20120914
  Receipt Date: 20120914
  Transmission Date: 20130627
  Serious: Yes (Other)
  Sender: FDA-Public Use
  Company Number: CA-JNJFOC-20120902361

PATIENT
  Age: 42 Year
  Sex: Male
  Weight: 102.5 kg

DRUGS (8)
  1. REMICADE [Suspect]
     Indication: CROHN^S DISEASE
     Dosage: 4th dose of infliximab
     Route: 042
     Dates: start: 20120905
  2. REMICADE [Suspect]
     Indication: CROHN^S DISEASE
     Route: 042
     Dates: start: 20120517
  3. IMURAN [Concomitant]
     Dosage: 4 tablets daily for 10 years
     Route: 065
  4. POTASSIUM CITRATE [Concomitant]
     Dosage: 3 tablets
     Route: 065
     Dates: start: 201203
  5. LIPIDIL [Concomitant]
     Dosage: 1 tablet
     Route: 048
     Dates: start: 2011
  6. EFFEXOR [Concomitant]
     Route: 048
     Dates: start: 2002
  7. CALCIUM [Concomitant]
     Dosage: 1 tablet
     Route: 048
     Dates: start: 201204, end: 201209
  8. VITAMIN D [Concomitant]
     Dosage: 3 tablets
     Route: 048
     Dates: start: 201204, end: 201209

REACTIONS (1)
  - Nephrolithiasis [Unknown]
